FAERS Safety Report 12448257 (Version 2)
Quarter: 2016Q3

REPORT INFORMATION
  Report Type: Report from Study
  Country: NL (occurrence: NL)
  Receive Date: 20160608
  Receipt Date: 20160721
  Transmission Date: 20161109
  Serious: Yes (Hospitalization)
  Sender: FDA-Public Use
  Company Number: NL-AMGEN-NLDSL2016072252

PATIENT
  Age: 53 Year
  Sex: Male

DRUGS (1)
  1. NEULASTA [Suspect]
     Active Substance: PEGFILGRASTIM
     Indication: NEUTROPENIA
     Dosage: 0.6 ML,1.00 X PER 2 WEKEN
     Route: 058

REACTIONS (3)
  - Surgery [Unknown]
  - Bacterial infection [Unknown]
  - Adverse event [Unknown]

NARRATIVE: CASE EVENT DATE: 20160712
